FAERS Safety Report 9711470 (Version 1)
Quarter: 2013Q4

REPORT INFORMATION
  Report Type: Spontaneous
  Country: US (occurrence: US)
  Receive Date: 20131126
  Receipt Date: 20131126
  Transmission Date: 20140711
  Serious: No
  Sender: FDA-Public Use
  Company Number: US-BRISTOL-MYERS SQUIBB COMPANY-18754671

PATIENT
  Age: 55 Year
  Sex: Female

DRUGS (4)
  1. BYDUREON [Suspect]
     Dates: start: 2013
  2. METFORMIN HCL XR [Concomitant]
     Indication: TYPE 2 DIABETES MELLITUS
     Route: 048
  3. LISINOPRIL [Concomitant]
     Route: 048
  4. SIMVASTATIN [Concomitant]
     Indication: BLOOD CHOLESTEROL
     Route: 048

REACTIONS (1)
  - Pruritus [Unknown]
